FAERS Safety Report 14261975 (Version 1)
Quarter: 2017Q4

REPORT INFORMATION
  Report Type: Report from Study
  Country: None (occurrence: US)
  Receive Date: 20171208
  Receipt Date: 20171208
  Transmission Date: 20180321
  Serious: Yes (Hospitalization, Other)
  Sender: FDA-Public Use
  Company Number: US-ABBVIE-17K-163-2178346-00

PATIENT
  Age: 81 Year
  Sex: Female

DRUGS (3)
  1. HUMIRA [Suspect]
     Active Substance: ADALIMUMAB
     Route: 058
     Dates: start: 2017, end: 201711
  2. HUMIRA [Suspect]
     Active Substance: ADALIMUMAB
     Indication: RHEUMATOID ARTHRITIS
     Route: 058
     Dates: start: 2015, end: 20170711
  3. OXYCODONE [Suspect]
     Active Substance: OXYCODONE
     Indication: PAIN
     Route: 065
     Dates: start: 2017, end: 2017

REACTIONS (24)
  - Incision site complication [Recovered/Resolved]
  - Myocardial infarction [Recovered/Resolved]
  - Drug hypersensitivity [Unknown]
  - Malaise [Unknown]
  - Surgical failure [Not Recovered/Not Resolved]
  - Staphylococcal infection [Unknown]
  - Intervertebral disc protrusion [Unknown]
  - Scratch [Unknown]
  - Bone pain [Unknown]
  - Nodule [Recovered/Resolved]
  - Knee arthroplasty [Unknown]
  - Hip arthroplasty [Recovered/Resolved]
  - Immunodeficiency [Unknown]
  - Pruritus allergic [Not Recovered/Not Resolved]
  - Wound decomposition [Recovered/Resolved]
  - Intervertebral disc degeneration [Unknown]
  - Shoulder arthroplasty [Unknown]
  - Skin haemorrhage [Unknown]
  - Osteoarthritis [Not Recovered/Not Resolved]
  - Body height decreased [Not Recovered/Not Resolved]
  - Arthralgia [Not Recovered/Not Resolved]
  - Incision site erythema [Unknown]
  - Pruritus allergic [Unknown]
  - Device issue [Unknown]

NARRATIVE: CASE EVENT DATE: 2017
